FAERS Safety Report 8371915-7 (Version None)
Quarter: 2012Q2

REPORT INFORMATION
  Report Type: 
  Country: None (occurrence: None)
  Receive Date: 20120518
  Receipt Date: 20120516
  Transmission Date: 20120825
  Serious: Yes (Death)
  Sender: FDA-Public Use
  Company Number: US-ROCHE-1063995

PATIENT
  Sex: Male
  Weight: 59.02 kg

DRUGS (4)
  1. XELODA [Suspect]
     Indication: NASOPHARYNGEAL CANCER
     Route: 048
  2. OXYCONTIN [Concomitant]
     Indication: PAIN
     Route: 048
  3. PROTONIX [Concomitant]
     Indication: ABDOMINAL DISCOMFORT
     Route: 048
  4. MEGACE [Concomitant]
     Indication: DECREASED APPETITE
     Route: 048

REACTIONS (1)
  - DEATH [None]
